APPROVED DRUG PRODUCT: HALOPERIDOL
Active Ingredient: HALOPERIDOL
Strength: 20MG
Dosage Form/Route: TABLET;ORAL
Application: A218789 | Product #006 | TE Code: AB
Applicant: AUROBINDO PHARMA LTD
Approved: Apr 19, 2024 | RLD: No | RS: No | Type: RX